FAERS Safety Report 14020625 (Version 2)
Quarter: 2017Q4

REPORT INFORMATION
  Report Type: Spontaneous
  Country: US (occurrence: US)
  Receive Date: 20170928
  Receipt Date: 20171025
  Transmission Date: 20180321
  Serious: No
  Sender: FDA-Public Use
  Company Number: US-PFIZER INC-2017419855

PATIENT
  Age: 73 Year
  Sex: Female

DRUGS (6)
  1. DEMEROL [Suspect]
     Active Substance: MEPERIDINE HYDROCHLORIDE
     Dosage: UNK
  2. ARAVA [Suspect]
     Active Substance: LEFLUNOMIDE
     Dosage: UNK
  3. SULFAMETHOXAZOLE [Suspect]
     Active Substance: SULFAMETHOXAZOLE
     Dosage: UNK
  4. FENTANYL CITRATE. [Suspect]
     Active Substance: FENTANYL CITRATE
     Dosage: UNK
  5. FELODIPINE. [Suspect]
     Active Substance: FELODIPINE
     Dosage: UNK
  6. CARVEDILOL. [Suspect]
     Active Substance: CARVEDILOL
     Dosage: UNK

REACTIONS (1)
  - Drug hypersensitivity [Unknown]
